FAERS Safety Report 5158248-7 (Version None)
Quarter: 2006Q4

REPORT INFORMATION
  Report Type: 
  Country: None (occurrence: None)
  Receive Date: 20061121
  Receipt Date: 20061121
  Transmission Date: 20070319
  Serious: Yes (Other)
  Sender: FDA-Public Use
  Company Number: None

PATIENT

DRUGS (2)
  1. PRILOSEC OTC [Suspect]
     Dates: end: 20060801
  2. ZEGERID [Suspect]
     Dates: end: 20060801

REACTIONS (4)
  - ENDOSCOPY ABNORMAL [None]
  - ERUCTATION [None]
  - FLATULENCE [None]
  - GASTRIC DISORDER [None]
